FAERS Safety Report 11919725 (Version 3)
Quarter: 2020Q3

REPORT INFORMATION
  Report Type: Report from Study
  Country: GB (occurrence: GB)
  Receive Date: 20160115
  Receipt Date: 20160812
  Transmission Date: 20201105
  Serious: Yes (Other)
  Sender: FDA-Public Use
  Company Number: GB-ASTRAZENECA-2016SE02415

PATIENT
  Age: 24383 Day
  Sex: Female
  Weight: 66.4 kg

DRUGS (6)
  1. VANDETANIB. [Suspect]
     Active Substance: VANDETANIB
     Indication: RECTAL CANCER METASTATIC
     Route: 048
     Dates: start: 20151014, end: 20151025
  2. VANDETANIB. [Suspect]
     Active Substance: VANDETANIB
     Indication: RECTAL CANCER METASTATIC
     Route: 048
     Dates: start: 20151026, end: 20151117
  3. SELUMETINIB. [Suspect]
     Active Substance: SELUMETINIB
     Indication: RECTAL CANCER METASTATIC
     Route: 048
     Dates: start: 20151026, end: 20151117
  4. VANDETANIB. [Suspect]
     Active Substance: VANDETANIB
     Indication: RECTAL CANCER METASTATIC
     Route: 048
     Dates: start: 20151130, end: 20160103
  5. VANDETANIB. [Suspect]
     Active Substance: VANDETANIB
     Indication: RECTAL CANCER METASTATIC
     Route: 048
     Dates: start: 20151012, end: 20151013
  6. SELUMETINIB. [Suspect]
     Active Substance: SELUMETINIB
     Indication: RECTAL CANCER METASTATIC
     Route: 048
     Dates: start: 20151130, end: 20160103

REACTIONS (1)
  - Retinal artery occlusion [Recovered/Resolved]

NARRATIVE: CASE EVENT DATE: 20151230
